FAERS Safety Report 12762538 (Version 1)
Quarter: 2016Q3

REPORT INFORMATION
  Report Type: Spontaneous
  Country: GR (occurrence: GR)
  Receive Date: 20160920
  Receipt Date: 20160920
  Transmission Date: 20161109
  Serious: Yes (Other)
  Sender: FDA-Public Use
  Company Number: GR-BAYER-2016-180345

PATIENT
  Sex: Female

DRUGS (2)
  1. MAGNEVIST [Suspect]
     Active Substance: GADOPENTETATE DIMEGLUMINE
     Indication: IMAGING PROCEDURE
     Dosage: UNK UNK, ONCE
     Route: 042
     Dates: start: 201609, end: 201609
  2. MAGNEVIST [Suspect]
     Active Substance: GADOPENTETATE DIMEGLUMINE
     Indication: MASTECTOMY

REACTIONS (4)
  - Injection site extravasation [None]
  - Vein rupture [Recovered/Resolved]
  - Localised oedema [Not Recovered/Not Resolved]
  - Pain of skin [Recovered/Resolved]

NARRATIVE: CASE EVENT DATE: 201609
